FAERS Safety Report 17435034 (Version 1)
Quarter: 2020Q1

REPORT INFORMATION
  Report Type: Spontaneous
  Country: US (occurrence: US)
  Receive Date: 20200204
  Receipt Date: 20200204
  Transmission Date: 20200409
  Serious: No
  Sender: FDA-Public Use
  Company Number: None

PATIENT
  Age: 73 Year
  Sex: Female

DRUGS (3)
  1. CYCLOBENZAPRINE. [Suspect]
     Active Substance: CYCLOBENZAPRINE
  2. BACLOFEN. [Suspect]
     Active Substance: BACLOFEN
     Indication: PAIN
     Route: 061
     Dates: start: 20191009, end: 20200131
  3. KETOPROFEN. [Suspect]
     Active Substance: KETOPROFEN

REACTIONS (1)
  - Application site rash [None]

NARRATIVE: CASE EVENT DATE: 20200203
